FAERS Safety Report 9211020 (Version 1)
Quarter: 2013Q2

REPORT INFORMATION
  Report Type: Other
  Country: GB (occurrence: GB)
  Receive Date: 20130404
  Receipt Date: 20130404
  Transmission Date: 20140414
  Serious: Yes (Hospitalization)
  Sender: FDA-Public Use
  Company Number: GB-ACTAVIS-2013-05994

PATIENT
  Age: 17 Year
  Sex: Male

DRUGS (1)
  1. IBUPROFEN (UNKNOWN) [Suspect]
     Indication: PAIN MANAGEMENT
     Dosage: 400 MG, ONCE
     Route: 048

REACTIONS (3)
  - Status asthmaticus [Recovered/Resolved]
  - Agitation [None]
  - Self-medication [None]
